FAERS Safety Report 6190098-5 (Version None)
Quarter: 2009Q2

REPORT INFORMATION
  Report Type: 
  Country: None (occurrence: None)
  Receive Date: 20090514
  Receipt Date: 20090504
  Transmission Date: 20091009
  Serious: Yes (Hospitalization, Other)
  Sender: FDA-Public Use
  Company Number: US-AVENTIS-200913931US

PATIENT
  Sex: Male

DRUGS (3)
  1. ALLEGRA-D 12 HOUR [Suspect]
     Indication: SEASONAL ALLERGY
     Dosage: DOSE: 1 TABLET BID
  2. ALLEGRA-D 12 HOUR [Suspect]
     Dosage: DOSE: 1 TABLET BID
     Dates: start: 20090201, end: 20090101
  3. BENADRYL [Concomitant]
     Dosage: DOSE: UNK

REACTIONS (4)
  - EXTRADURAL HAEMATOMA [None]
  - PAIN [None]
  - PARALYSIS [None]
  - VASCULAR INJURY [None]
